FAERS Safety Report 7405041-8 (Version None)
Quarter: 2011Q1

REPORT INFORMATION
  Report Type: 
  Country: None (occurrence: None)
  Receive Date: 20110301
  Receipt Date: 20101026
  Transmission Date: 20110831
  Serious: Yes (Hospitalization)
  Sender: FDA-Public Use
  Company Number: RB-15230-2010

PATIENT
  Sex: Male

DRUGS (4)
  1. SUBUTEX [Suspect]
     Indication: DRUG DEPENDENCE
     Dosage: (12 MG TRANSPLACENTAL), (12 MG TRANSMAMMARY)
     Route: 064
     Dates: end: 20100903
  2. SUBUTEX [Suspect]
     Indication: DRUG DEPENDENCE
     Dosage: (12 MG TRANSPLACENTAL), (12 MG TRANSMAMMARY)
     Route: 064
     Dates: start: 20100903, end: 20101001
  3. COCAINE (NONE) [Suspect]
     Indication: PRODUCT USED FOR UNKNOWN INDICATION
     Dosage: (TRANSPLACENTAL), (TRANSMAMMARY)
     Route: 064
     Dates: end: 20100903
  4. COCAINE (NONE) [Suspect]
     Indication: PRODUCT USED FOR UNKNOWN INDICATION
     Dosage: (TRANSPLACENTAL), (TRANSMAMMARY)
     Route: 064
     Dates: end: 20100903

REACTIONS (3)
  - DRUG EXPOSURE DURING PREGNANCY [None]
  - JAUNDICE [None]
  - DRUG EXPOSURE VIA BREAST MILK [None]
